FAERS Safety Report 5261158-8 (Version None)
Quarter: 2007Q1

REPORT INFORMATION
  Report Type: 
  Country: None (occurrence: None)
  Receive Date: 20070309
  Receipt Date: 20070223
  Transmission Date: 20070707
  Serious: Yes (Other)
  Sender: FDA-Public Use
  Company Number: US-AMGEN-US212540

PATIENT
  Age: 60 Year
  Sex: Female

DRUGS (3)
  1. ENBREL [Suspect]
     Indication: PSORIATIC ARTHROPATHY
     Route: 058
     Dates: start: 20040101
  2. LEXAPRO [Concomitant]
  3. PREMARIN [Concomitant]

REACTIONS (2)
  - PULMONARY GRANULOMA [None]
  - TUBERCULOSIS SKIN TEST POSITIVE [None]
